FAERS Safety Report 7636462-6 (Version None)
Quarter: 2011Q3

REPORT INFORMATION
  Report Type: 
  Country: None (occurrence: None)
  Receive Date: 20110719
  Receipt Date: 20110707
  Transmission Date: 20111222
  Serious: Yes (Hospitalization)
  Sender: FDA-Public Use
  Company Number: 1000021818

PATIENT
  Age: 68 Year
  Sex: Female

DRUGS (7)
  1. DOXAZOSIN MESYLATE [Concomitant]
  2. DULOXETIME HYDROCHLORIDE [Suspect]
     Indication: STRESS URINARY INCONTINENCE
     Dosage: 80 MG (40 MG, 2 IN 1 D) ORAL
     Route: 048
     Dates: start: 20091101
  3. NEBIVOLOL HCL [Suspect]
     Indication: HYPERTENSION
     Dosage: 5 MG (5 MG, 1 IN 1 D)
  4. OMEPRAZOLE [Suspect]
     Indication: GASTRITIS
     Dosage: 20 MG 920 MG, 1 IN 1 D)
     Dates: start: 20030101
  5. METFORMIN HCL [Concomitant]
  6. RISEDRONATE SODIUM [Concomitant]
  7. VALSARTAN [Concomitant]

REACTIONS (3)
  - LEFT VENTRICULAR DYSFUNCTION [None]
  - STRESS CARDIOMYOPATHY [None]
  - DRUG INTERACTION [None]
